FAERS Safety Report 8454754-8 (Version None)
Quarter: 2012Q2

REPORT INFORMATION
  Report Type: 
  Country: None (occurrence: None)
  Receive Date: 20120614
  Receipt Date: 20120529
  Transmission Date: 20120825
  Serious: Yes (Other)
  Sender: FDA-Public Use
  Company Number: FK201201558

PATIENT
  Age: 56 Year
  Sex: Male

DRUGS (2)
  1. FLUOROURACIL [Suspect]
     Indication: PANCREATIC CARCINOMA
     Dosage: 1000 MG/M2, 1 IN 1 WK
  2. GEMCITABINE (GEMICITABINE) [Concomitant]

REACTIONS (2)
  - BILOMA [None]
  - HEPATIC ARTERY STENOSIS [None]
